FAERS Safety Report 11979717 (Version 2)
Quarter: 2016Q2

REPORT INFORMATION
  Report Type: Spontaneous
  Country: US (occurrence: US)
  Receive Date: 20160129
  Receipt Date: 20160527
  Transmission Date: 20160815
  Serious: Yes (Hospitalization)
  Sender: FDA-Public Use
  Company Number: US-BAYER-2016-017305

PATIENT
  Age: 23 Year
  Sex: Female
  Weight: 68.27 kg

DRUGS (1)
  1. MIRENA [Suspect]
     Active Substance: LEVONORGESTREL
     Indication: CONTRACEPTION
     Dosage: 20 MCG/24HR, CONT
     Route: 015
     Dates: start: 20090807, end: 20130510

REACTIONS (10)
  - Device breakage [None]
  - Device difficult to use [None]
  - Anxiety [None]
  - Dyspareunia [None]
  - Embedded device [Not Recovered/Not Resolved]
  - Complication of device removal [None]
  - Abdominal pain [Not Recovered/Not Resolved]
  - Procedural pain [None]
  - Depression [None]
  - Device issue [Not Recovered/Not Resolved]

NARRATIVE: CASE EVENT DATE: 2013
